FAERS Safety Report 4816744-3 (Version None)
Quarter: 2005Q4

REPORT INFORMATION
  Report Type: 
  Country: None (occurrence: None)
  Receive Date: 20051101
  Receipt Date: 20050419
  Transmission Date: 20060501
  Serious: No
  Sender: FDA-Public Use
  Company Number: US-GLAXOSMITHKLINE-A0554865A

PATIENT
  Sex: Female

DRUGS (2)
  1. AMOXICILLIN [Suspect]
     Indication: SINUSITIS
  2. SUDAFED 12 HOUR [Suspect]
     Indication: SINUSITIS

REACTIONS (2)
  - DRUG INEFFECTIVE [None]
  - FEELING JITTERY [None]
